FAERS Safety Report 15450235 (Version 1)
Quarter: 2018Q4

REPORT INFORMATION
  Report Type: Spontaneous
  Country: US (occurrence: US)
  Receive Date: 20181001
  Receipt Date: 20181001
  Transmission Date: 20190204
  Serious: No
  Sender: FDA-Public Use
  Company Number: US-PFIZER INC-2018388527

PATIENT
  Age: 49 Year
  Sex: Female
  Weight: 47.63 kg

DRUGS (1)
  1. CHANTIX [Suspect]
     Active Substance: VARENICLINE TARTRATE
     Indication: SMOKING CESSATION THERAPY
     Dosage: 2 DF, 2X/DAY (1  TABLET IN THE MORNING BY MOUTH AND 1 TABLET IN THE EVENING BY MOUTH)
     Route: 048
     Dates: start: 20170518, end: 20170601

REACTIONS (2)
  - Nausea [Recovered/Resolved]
  - Drug ineffective [Recovered/Resolved]

NARRATIVE: CASE EVENT DATE: 20170518
